FAERS Safety Report 15738728 (Version 1)
Quarter: 2018Q4

REPORT INFORMATION
  Report Type: Spontaneous
  Country: HU (occurrence: HU)
  Receive Date: 20181219
  Receipt Date: 20181219
  Transmission Date: 20190205
  Serious: Yes (Death)
  Sender: FDA-Public Use
  Company Number: HU-ACTELION-A-CH2018-183616

PATIENT
  Sex: Male

DRUGS (5)
  1. REMODULIN [Concomitant]
     Active Substance: TREPROSTINIL
     Dosage: 40 NG, UNK
     Route: 058
     Dates: start: 20180405, end: 20181209
  2. FUROSEMIDE AL [Concomitant]
     Dosage: 500 MG, TID
     Route: 048
     Dates: start: 20171103, end: 20181209
  3. SPIRON FT [Concomitant]
     Dosage: 100 MG, BID
     Route: 048
     Dates: start: 20180405, end: 20181209
  4. OPSUMIT [Suspect]
     Active Substance: MACITENTAN
     Indication: PULMONARY ARTERIAL HYPERTENSION
     Dosage: 10 MG, QD
     Route: 048
     Dates: start: 20161220, end: 20181209
  5. ADCIRCA [Concomitant]
     Active Substance: TADALAFIL
     Dosage: 20 MG, BID
     Route: 048
     Dates: start: 20161220, end: 20181209

REACTIONS (3)
  - Pulmonary arterial hypertension [Unknown]
  - Right ventricular failure [Fatal]
  - Disease progression [Unknown]

NARRATIVE: CASE EVENT DATE: 201811
